FAERS Safety Report 5863304-1 (Version None)
Quarter: 2008Q3

REPORT INFORMATION
  Report Type: 
  Country: None (occurrence: None)
  Receive Date: 20080828
  Receipt Date: 20080818
  Transmission Date: 20090109
  Serious: Yes (Life-Threatening, Hospitalization, Other)
  Sender: FDA-Public Use
  Company Number: NO-PFIZER INC-2008068904

PATIENT
  Age: 65 Year
  Sex: Female

DRUGS (4)
  1. ZOLOFT [Suspect]
     Indication: ANXIETY
     Route: 048
  2. ZOLOFT [Suspect]
     Indication: DEPRESSION
  3. FERRO-RETARD [Concomitant]
     Route: 048
  4. RENITEC [Concomitant]
     Route: 048

REACTIONS (3)
  - CARDIAC ARREST [None]
  - ELECTROCARDIOGRAM QT PROLONGED [None]
  - VENTRICULAR FLUTTER [None]
